FAERS Safety Report 8073711-7 (Version None)
Quarter: 2012Q1

REPORT INFORMATION
  Report Type: 
  Country: None (occurrence: None)
  Receive Date: 20120126
  Receipt Date: 20120119
  Transmission Date: 20120608
  Serious: Yes (Hospitalization, Disabling, Other)
  Sender: FDA-Public Use
  Company Number: US-MERCK-1108USA02082

PATIENT
  Age: 44 Year
  Sex: Female
  Weight: 75 kg

DRUGS (1)
  1. FOSAMAX [Suspect]
     Indication: OSTEOPOROSIS
     Route: 048
     Dates: end: 20100430

REACTIONS (33)
  - GASTROOESOPHAGEAL REFLUX DISEASE [None]
  - OSTEOPOROSIS [None]
  - RADICULAR PAIN [None]
  - THYROID NEOPLASM [None]
  - GINGIVAL DISORDER [None]
  - FALL [None]
  - TIBIA FRACTURE [None]
  - HYPERTENSION [None]
  - MOTOR NEURONE DISEASE [None]
  - ADVERSE EVENT [None]
  - VARICES OESOPHAGEAL [None]
  - JOINT EFFUSION [None]
  - OSTEOPENIA [None]
  - OSTEOARTHRITIS [None]
  - NEUROPATHY PERIPHERAL [None]
  - TOOTH DISORDER [None]
  - DYSPHAGIA [None]
  - MUSCULOSKELETAL DISCOMFORT [None]
  - VITAMIN D DEFICIENCY [None]
  - HYPERTHYROIDISM [None]
  - FEMUR FRACTURE [None]
  - GASTRIC DISORDER [None]
  - LOW TURNOVER OSTEOPATHY [None]
  - STRESS FRACTURE [None]
  - MOBILITY DECREASED [None]
  - ANAEMIA [None]
  - BARRETT'S OESOPHAGUS [None]
  - CALCIUM DEFICIENCY [None]
  - HYPOTENSION [None]
  - LIVER FUNCTION TEST ABNORMAL [None]
  - LIMB INJURY [None]
  - OESOPHAGITIS [None]
  - BACK PAIN [None]
